FAERS Safety Report 17966729 (Version 1)
Quarter: 2020Q2

REPORT INFORMATION
  Report Type: Spontaneous
  Country: US (occurrence: US)
  Receive Date: 20200630
  Receipt Date: 20200630
  Transmission Date: 20200714
  Serious: Yes (Other)
  Sender: FDA-Public Use
  Company Number: US-ALEMBIC PHARMACUETICALS LIMITED-2020SCAL000285

PATIENT

DRUGS (1)
  1. FLUOXETINE HYDROCHLORIDE. [Suspect]
     Active Substance: FLUOXETINE HYDROCHLORIDE
     Indication: PRODUCT USED FOR UNKNOWN INDICATION
     Dosage: 20 MILLIGRAM, BLUE CAPSULES

REACTIONS (9)
  - Sleep disorder [Unknown]
  - Product substitution issue [Unknown]
  - Vomiting [Unknown]
  - Headache [Unknown]
  - Night sweats [Unknown]
  - Nightmare [Unknown]
  - Malaise [Unknown]
  - Gastric infection [Unknown]
  - Diarrhoea [Unknown]
